FAERS Safety Report 6420234-4 (Version None)
Quarter: 2009Q4

REPORT INFORMATION
  Report Type: 
  Country: None (occurrence: None)
  Receive Date: 20091029
  Receipt Date: 20091023
  Transmission Date: 20100525
  Serious: Yes (Death, Hospitalization)
  Sender: FDA-Public Use
  Company Number: PHHY2009JP44842

PATIENT
  Sex: Male
  Weight: 66 kg

DRUGS (3)
  1. ZOMETA [Suspect]
     Indication: METASTASES TO BONE
     Dosage: 4 MG, QMO
     Route: 042
     Dates: start: 20070928, end: 20080112
  2. ZOMETA [Suspect]
     Indication: PROSTATE CANCER
  3. TAXOTERE [Suspect]
     Indication: PROSTATE CANCER
     Dosage: 100 MG, QMO
     Route: 042
     Dates: start: 20070926, end: 20080110

REACTIONS (4)
  - DECREASED APPETITE [None]
  - MALAISE [None]
  - MALIGNANT NEOPLASM PROGRESSION [None]
  - WHITE BLOOD CELL COUNT DECREASED [None]
